FAERS Safety Report 19313470 (Version 6)
Quarter: 2021Q4

REPORT INFORMATION
  Report Type: Spontaneous
  Country: US (occurrence: US)
  Receive Date: 20210527
  Receipt Date: 20211018
  Transmission Date: 20220303
  Serious: Yes (Other)
  Sender: FDA-Public Use
  Company Number: US-JNJFOC-20210543798

PATIENT
  Age: 38 Year
  Sex: Female

DRUGS (35)
  1. ELMIRON [Suspect]
     Active Substance: PENTOSAN POLYSULFATE SODIUM
     Indication: Cystitis interstitial
     Dosage: 100 MG 2 CAPSULES TWICE A DAY
     Route: 048
     Dates: start: 201204, end: 201302
  2. ELMIRON [Suspect]
     Active Substance: PENTOSAN POLYSULFATE SODIUM
     Dosage: 100 MG 2 CAPSULES TWICE A DAY
     Route: 048
     Dates: start: 201306, end: 201312
  3. ELMIRON [Suspect]
     Active Substance: PENTOSAN POLYSULFATE SODIUM
     Dosage: 1 CAPSULES 3 TIMES A DAY
     Route: 048
     Dates: start: 201401, end: 201403
  4. ELMIRON [Suspect]
     Active Substance: PENTOSAN POLYSULFATE SODIUM
     Dosage: 100 MG 2 CAPSULES TWICE A DAY
     Route: 048
     Dates: start: 201406, end: 201504
  5. VYVANSE [Concomitant]
     Active Substance: LISDEXAMFETAMINE DIMESYLATE
     Indication: Depression
     Route: 065
     Dates: end: 2013
  6. ESTRADIOL [Concomitant]
     Active Substance: ESTRADIOL
     Route: 065
     Dates: end: 2013
  7. LORAZEPAM [Concomitant]
     Active Substance: LORAZEPAM
     Indication: Anxiety
     Route: 065
     Dates: start: 2012, end: 2016
  8. LORAZEPAM [Concomitant]
     Active Substance: LORAZEPAM
     Indication: Muscle spasms
  9. LAMOTRIGINE [Concomitant]
     Active Substance: LAMOTRIGINE
     Indication: Bipolar disorder
     Route: 065
     Dates: end: 2019
  10. ESCITALOPRAM [Concomitant]
     Active Substance: ESCITALOPRAM OXALATE
     Indication: Anxiety
     Route: 065
     Dates: end: 2013
  11. ESCITALOPRAM [Concomitant]
     Active Substance: ESCITALOPRAM OXALATE
     Indication: Depression
  12. BUPROPION HYDROCHLORIDE XL [Concomitant]
     Active Substance: BUPROPION HYDROCHLORIDE
     Indication: Anxiety
     Route: 065
     Dates: start: 2013
  13. BUPROPION HYDROCHLORIDE XL [Concomitant]
     Active Substance: BUPROPION HYDROCHLORIDE
     Indication: Depression
  14. ONDANSETRON HYDROCHLORIDE [Concomitant]
     Active Substance: ONDANSETRON HYDROCHLORIDE
     Indication: Nausea
     Route: 065
     Dates: start: 201505, end: 2016
  15. PROPRANOLOL HYDROCHLORIDE [Concomitant]
     Active Substance: PROPRANOLOL HYDROCHLORIDE
     Indication: Raynaud^s phenomenon
     Route: 065
     Dates: start: 2013, end: 2013
  16. URIBEL [Concomitant]
     Active Substance: HYOSCYAMINE SULFATE\METHENAMINE\METHYLENE BLUE\PHENYL SALICYLATE\SODIUM PHOSPHATE, MONOBASIC, MONOHY
     Indication: Cystitis interstitial
     Route: 065
     Dates: end: 2015
  17. HYDROXYZINE [Concomitant]
     Active Substance: HYDROXYZINE HYDROCHLORIDE
     Indication: Cystitis interstitial
     Route: 065
     Dates: start: 2014, end: 2018
  18. AMITRIPTYLINE [Concomitant]
     Active Substance: AMITRIPTYLINE
     Indication: Cystitis interstitial
     Route: 065
     Dates: end: 2013
  19. LEVOTHYROXINE [Concomitant]
     Active Substance: LEVOTHYROXINE
     Indication: Thyroid disorder
     Route: 065
     Dates: start: 2013, end: 2013
  20. ARMOUR THYROID [Concomitant]
     Active Substance: THYROID, PORCINE
     Indication: Thyroid disorder
     Route: 065
     Dates: start: 2013
  21. AMLODIPINE BESYLATE [Concomitant]
     Active Substance: AMLODIPINE BESYLATE
     Indication: Raynaud^s phenomenon
     Route: 065
     Dates: start: 20140128, end: 20140824
  22. EMSAM [Concomitant]
     Active Substance: SELEGILINE
     Indication: Antidepressant therapy
     Route: 065
     Dates: start: 2013, end: 2020
  23. CANASA [Concomitant]
     Active Substance: MESALAMINE
     Indication: Proctitis ulcerative
     Route: 065
     Dates: start: 2016, end: 2018
  24. GABAPENTIN [Concomitant]
     Active Substance: GABAPENTIN
     Indication: Cystitis interstitial
     Route: 065
     Dates: start: 20140707
  25. LISINOPRIL [Concomitant]
     Active Substance: LISINOPRIL
     Indication: Hypertension
     Route: 065
     Dates: start: 2021
  26. BACLOFEN [Concomitant]
     Active Substance: BACLOFEN
     Indication: Cystitis interstitial
     Route: 065
     Dates: start: 2015
  27. URISPAS [Concomitant]
     Active Substance: FLAVOXATE HYDROCHLORIDE
     Indication: Cystitis interstitial
     Route: 065
     Dates: start: 2016
  28. CYSTA Q TM [Concomitant]
     Indication: Cystitis interstitial
     Route: 065
     Dates: start: 2015
  29. CALCIUM GLYCEROPHOSPHATE [Concomitant]
     Active Substance: CALCIUM GLYCEROPHOSPHATE
     Indication: Cystitis interstitial
     Route: 065
     Dates: start: 2015
  30. MARCAINE [Concomitant]
     Active Substance: BUPIVACAINE HYDROCHLORIDE
     Indication: Cystitis interstitial
     Route: 065
     Dates: start: 2014
  31. LIDOCAINE [Concomitant]
     Active Substance: LIDOCAINE
     Indication: Cystitis interstitial
     Route: 065
     Dates: start: 2014
  32. SINGULAIR [Concomitant]
     Active Substance: MONTELUKAST SODIUM
     Indication: Multiple allergies
     Route: 065
     Dates: start: 2021
  33. SENSORCAINE [BUPIVACAINE HYDROCHLORIDE] [Concomitant]
     Route: 065
     Dates: start: 2014
  34. HEPARIN [Concomitant]
     Active Substance: HEPARIN SODIUM
     Dosage: 10,000 USP
     Route: 065
     Dates: start: 2014
  35. HYDROCODONE [Concomitant]
     Active Substance: HYDROCODONE
     Indication: Cystitis interstitial
     Route: 065
     Dates: start: 2020

REACTIONS (7)
  - Age-related macular degeneration [Not Recovered/Not Resolved]
  - Colitis ulcerative [Unknown]
  - Retinal pigmentation [Not Recovered/Not Resolved]
  - Anxiety [Not Recovered/Not Resolved]
  - Depression [Not Recovered/Not Resolved]
  - Product use issue [Unknown]
  - Off label use [Unknown]

NARRATIVE: CASE EVENT DATE: 20120401
